FAERS Safety Report 4317090-7 (Version None)
Quarter: 2004Q1

REPORT INFORMATION
  Report Type: 
  Country: None (occurrence: None)
  Receive Date: 20040312
  Receipt Date: 20040224
  Transmission Date: 20041129
  Serious: Yes (Life-Threatening, Hospitalization)
  Sender: FDA-Public Use
  Company Number: DSA_24042_2004

PATIENT
  Age: 76 Year
  Sex: Female

DRUGS (1)
  1. ENALAPRIL MALEATE [Suspect]
     Indication: ESSENTIAL HYPERTENSION
     Dosage: 10 MG QD PO
     Route: 048
     Dates: start: 20031119, end: 20031119

REACTIONS (5)
  - DIZZINESS [None]
  - DYSPNOEA [None]
  - HYPOTENSION [None]
  - LEFT VENTRICULAR FAILURE [None]
  - VISION BLURRED [None]
